FAERS Safety Report 14850797 (Version 2)
Quarter: 2018Q3

REPORT INFORMATION
  Report Type: Spontaneous
  Country: US (occurrence: US)
  Receive Date: 20180506
  Receipt Date: 20180706
  Transmission Date: 20181010
  Serious: No
  Sender: FDA-Public Use
  Company Number: US-JNJFOC-20180412369

PATIENT
  Age: 56 Year
  Sex: Female
  Weight: 54.43 kg

DRUGS (7)
  1. MENS ROGAINE EXTRA STRENGTH [Suspect]
     Active Substance: MINOXIDIL
     Route: 061
  2. MENS ROGAINE EXTRA STRENGTH [Suspect]
     Active Substance: MINOXIDIL
     Indication: ALOPECIA
     Dosage: 1 CAPFUL
     Route: 061
     Dates: start: 20180213
  3. MULTIVITAMINS [Concomitant]
     Active Substance: VITAMINS
     Indication: ROUTINE HEALTH MAINTENANCE
     Route: 065
  4. SUPER B STRESS [Concomitant]
     Indication: ROUTINE HEALTH MAINTENANCE
     Route: 065
  5. MAGNESIUM [Concomitant]
     Active Substance: MAGNESIUM
     Indication: ROUTINE HEALTH MAINTENANCE
     Route: 065
  6. VITAMIN D [Concomitant]
     Active Substance: CHOLECALCIFEROL
     Indication: ROUTINE HEALTH MAINTENANCE
     Route: 065
  7. BIOTIN [Concomitant]
     Active Substance: BIOTIN
     Indication: ROUTINE HEALTH MAINTENANCE
     Route: 065

REACTIONS (8)
  - Burning sensation [Recovering/Resolving]
  - Product use issue [Unknown]
  - Pruritus [Recovering/Resolving]
  - Dry skin [Recovering/Resolving]
  - Intentional product misuse [Unknown]
  - Pain [Recovering/Resolving]
  - Skin exfoliation [Recovering/Resolving]
  - Overdose [Unknown]
